FAERS Safety Report 8990337 (Version 1)
Quarter: 2012Q4

REPORT INFORMATION
  Report Type: 
  Country: US (occurrence: US)
  Receive Date: 20121228
  Receipt Date: 20121228
  Transmission Date: 20130627
  Serious: No
  Sender: FDA-Public Use
  Company Number: US-ASTRAZENECA-2012SE95024

PATIENT
  Age: 15 Year
  Sex: Female
  Weight: 45.4 kg

DRUGS (2)
  1. SYMBICORT PMDI [Suspect]
     Indication: ASTHMA
     Dosage: 80 MCG, DAILY
     Route: 055
     Dates: start: 201211
  2. AUGMENTIN [Concomitant]
     Indication: SINUSITIS

REACTIONS (5)
  - Back pain [Not Recovered/Not Resolved]
  - Neck pain [Unknown]
  - Pain [Unknown]
  - Sinusitis [Unknown]
  - Sleep disorder [Unknown]
